FAERS Safety Report 17520919 (Version 1)
Quarter: 2020Q1

REPORT INFORMATION
  Report Type: Spontaneous
  Country: US (occurrence: US)
  Receive Date: 20200302
  Receipt Date: 20200302
  Transmission Date: 20200409
  Serious: No
  Sender: FDA-Public Use
  Company Number: None

PATIENT
  Sex: Male

DRUGS (1)
  1. INSULIN (INSULIN, GLARGINE, HUMAN 100UNT/ML INJ) [Suspect]
     Active Substance: INSULIN GLARGINE
     Dosage: ?          OTHER STRENGTH:100 UNT/ML;?
     Route: 048
     Dates: start: 20191003, end: 20191112

REACTIONS (1)
  - Dizziness [None]

NARRATIVE: CASE EVENT DATE: 20191112
